FAERS Safety Report 9495870 (Version 1)
Quarter: 2013Q3

REPORT INFORMATION
  Report Type: Spontaneous
  Country: FR (occurrence: FR)
  Receive Date: 20130903
  Receipt Date: 20130903
  Transmission Date: 20140515
  Serious: Yes (Life-Threatening, Other)
  Sender: FDA-Public Use
  Company Number: FR-009507513-1308FRA010623

PATIENT
  Age: 79 Year
  Sex: Female

DRUGS (6)
  1. INEGY [Suspect]
     Indication: HYPERCHOLESTEROLAEMIA
     Dosage: UNK
     Route: 048
     Dates: start: 20130604, end: 20130724
  2. ISONIAZID [Suspect]
     Indication: LATENT TUBERCULOSIS
     Dosage: 250 MG, UNK
     Route: 048
     Dates: end: 20130724
  3. TARDYFERON [Suspect]
     Indication: IRON DEFICIENCY
     Dosage: 80 MG, QD
     Route: 048
     Dates: start: 20130604, end: 20130724
  4. RENVELA [Suspect]
     Indication: HYPERPHOSPHATAEMIA
     Dosage: UNK
     Dates: start: 20130604, end: 20130724
  5. KARDEGIC [Concomitant]
  6. ZOPICLONE [Concomitant]

REACTIONS (2)
  - Disseminated intravascular coagulation [Not Recovered/Not Resolved]
  - Hepatitis [Recovering/Resolving]
